FAERS Safety Report 4681431-1 (Version None)
Quarter: 2005Q2

REPORT INFORMATION
  Report Type: 
  Country: None (occurrence: None)
  Receive Date: 20050601
  Receipt Date: 20050513
  Transmission Date: 20051028
  Serious: Yes (Other)
  Sender: FDA-Public Use
  Company Number: USA050598040

PATIENT
  Age: 57 Year
  Sex: Female

DRUGS (3)
  1. FORTEO [Suspect]
     Indication: COMPRESSION FRACTURE
     Dosage: 20 UG/1 DAY
     Dates: start: 20031201
  2. FORTEO [Suspect]
     Indication: OSTEOPOROSIS
     Dosage: 20 UG/1 DAY
     Dates: start: 20031201
  3. FORTEO [Suspect]
     Indication: RIB FRACTURE
     Dosage: 20 UG/1 DAY
     Dates: start: 20031201

REACTIONS (4)
  - INTERVERTEBRAL DISC DISORDER [None]
  - PAIN [None]
  - PHARMACEUTICAL PRODUCT COMPLAINT [None]
  - RIB FRACTURE [None]
